FAERS Safety Report 25806375 (Version 3)
Quarter: 2025Q4

REPORT INFORMATION
  Report Type: Spontaneous
  Country: US (occurrence: US)
  Receive Date: 20250916
  Receipt Date: 20251118
  Transmission Date: 20260119
  Serious: No
  Sender: TOLMAR
  Company Number: US-Tolmar-TLM-2025-05297

PATIENT

DRUGS (3)
  1. ELIGARD [Suspect]
     Active Substance: LEUPROLIDE ACETATE
     Indication: Prostate cancer
     Dosage: DOSE NOT ADMINISTERED?BOX) LOT NUMBER 15364CUS, EXPIRATION DATE 11-2026, SERIAL NUMBER 7267902206184
  2. ELIGARD [Suspect]
     Active Substance: LEUPROLIDE ACETATE
     Dosage: REPLACEMENT DOSE
  3. DEVICE [Suspect]
     Active Substance: DEVICE
     Indication: Prostate cancer
     Dosage: BOX) LOT NUMBER 15364CUS, EXPIRATION DATE 11-2026, SERIAL NUMBER 7267902206184, NDC?NUMBER 62935-227

REACTIONS (2)
  - Intercepted product preparation error [Unknown]
  - Device occlusion [Unknown]
